FAERS Safety Report 7323461-7 (Version None)
Quarter: 2011Q1

REPORT INFORMATION
  Report Type: 
  Country: None (occurrence: None)
  Receive Date: 20110301
  Receipt Date: 20110216
  Transmission Date: 20110831
  Serious: Yes (Hospitalization)
  Sender: FDA-Public Use
  Company Number: US-ACTELION-A-US2010-41605

PATIENT

DRUGS (5)
  1. TRACLEER [Suspect]
     Dosage: UNK
     Route: 048
     Dates: start: 20101214
  2. TREPROSTINOL [Concomitant]
  3. OPIOIDS [Suspect]
  4. COUMADIN [Concomitant]
  5. TRACLEER [Suspect]
     Indication: PULMONARY ARTERIAL HYPERTENSION
     Dosage: UNK
     Route: 048
     Dates: start: 20070829, end: 20101028

REACTIONS (5)
  - TRANSAMINASES INCREASED [None]
  - ALANINE AMINOTRANSFERASE INCREASED [None]
  - TOXICITY TO VARIOUS AGENTS [None]
  - MENTAL STATUS CHANGES [None]
  - ASPARTATE AMINOTRANSFERASE INCREASED [None]
